FAERS Safety Report 13182442 (Version 1)
Quarter: 2017Q1

REPORT INFORMATION
  Report Type: Report from Study
  Country: None (occurrence: US)
  Receive Date: 20170203
  Receipt Date: 20170203
  Transmission Date: 20170428
  Serious: Yes (Hospitalization)
  Sender: FDA-Public Use
  Company Number: US-ABBVIE-16K-163-1804557-00

PATIENT
  Sex: Female
  Weight: 59.02 kg

DRUGS (3)
  1. HUMIRA [Suspect]
     Active Substance: ADALIMUMAB
     Dosage: DOUBLE DOSE OF HUMIRA
     Route: 058
     Dates: start: 2016
  2. HUMIRA [Suspect]
     Active Substance: ADALIMUMAB
     Route: 058
  3. HUMIRA [Suspect]
     Active Substance: ADALIMUMAB
     Indication: COLITIS ULCERATIVE
     Route: 058
     Dates: end: 2016

REACTIONS (6)
  - Hyperthyroidism [Recovering/Resolving]
  - Colitis ulcerative [Recovered/Resolved]
  - Arthralgia [Unknown]
  - Autoimmune disorder [Unknown]
  - Hypothyroidism [Recovering/Resolving]
  - Alopecia [Unknown]

NARRATIVE: CASE EVENT DATE: 2016
